FAERS Safety Report 14995898 (Version 1)
Quarter: 2018Q2

REPORT INFORMATION
  Report Type: Spontaneous
  Country: DE (occurrence: DE)
  Receive Date: 20180611
  Receipt Date: 20180611
  Transmission Date: 20180711
  Serious: Yes (Hospitalization)
  Sender: FDA-Public Use
  Company Number: DE-TEVA-2018-DE-904439

PATIENT
  Age: 79 Year
  Sex: Male

DRUGS (3)
  1. KALIUM [Concomitant]
     Active Substance: POTASSIUM CHLORIDE
     Route: 065
  2. FLUOROURACIL. [Suspect]
     Active Substance: FLUOROURACIL
     Route: 065
  3. ENOXAPARIN [Concomitant]
     Active Substance: ENOXAPARIN
     Route: 065

REACTIONS (2)
  - Fatigue [Unknown]
  - General physical health deterioration [Unknown]
